FAERS Safety Report 9529679 (Version 2)
Quarter: 2013Q4

REPORT INFORMATION
  Report Type: Spontaneous
  Country: US (occurrence: US)
  Receive Date: 20130917
  Receipt Date: 20131216
  Transmission Date: 20140711
  Serious: Yes (Other)
  Sender: FDA-Public Use
  Company Number: US-GLAXOSMITHKLINE-A1041347A

PATIENT
  Age: 75 Year
  Sex: Female

DRUGS (5)
  1. ADVAIR [Suspect]
     Indication: CHRONIC OBSTRUCTIVE PULMONARY DISEASE
     Dosage: 1PUFF PER DAY
     Route: 055
     Dates: start: 200309
  2. IBUPROFEN [Concomitant]
  3. TYLENOL EXTRA STRENGTH [Concomitant]
  4. ASPIRIN [Concomitant]
  5. UNKNOWN [Concomitant]

REACTIONS (4)
  - Myalgia [Not Recovered/Not Resolved]
  - Bone pain [Not Recovered/Not Resolved]
  - Cataract [Not Recovered/Not Resolved]
  - Borderline glaucoma [Not Recovered/Not Resolved]
